FAERS Safety Report 9010915 (Version 2)
Quarter: 2013Q1

REPORT INFORMATION
  Report Type: Spontaneous
  Country: PT (occurrence: PT)
  Receive Date: 20130109
  Receipt Date: 20130204
  Transmission Date: 20140127
  Serious: Yes (Life-Threatening, Other)
  Sender: FDA-Public Use
  Company Number: PT-TEVA-379034ISR

PATIENT
  Age: 56 Year
  Sex: Male
  Weight: 80 kg

DRUGS (10)
  1. FLUCONAZOL [Suspect]
     Indication: BODY TINEA
     Dosage: 150 MILLIGRAM DAILY;
     Route: 048
     Dates: start: 20121218
  2. FLUDEX LP [Concomitant]
     Dosage: 1.5 MILLIGRAM DAILY;
     Route: 048
  3. OLSAR 40 MG [Concomitant]
     Route: 048
  4. ISOPTIN HTA [Concomitant]
     Dosage: 240 MILLIGRAM DAILY;
     Route: 048
  5. SUPRALIP 145 MG [Concomitant]
     Dosage: 145 MILLIGRAM DAILY;
     Route: 048
  6. RISIDON [Concomitant]
     Indication: BODY TINEA
     Dosage: 1000 MILLIGRAM DAILY;
     Route: 048
     Dates: start: 201204
  7. TROMALYT 150 MG [Concomitant]
     Dosage: 150 MILLIGRAM DAILY; MODIFIED-RELEASE CAPSULE, HARD
     Route: 048
  8. EZETROL [Concomitant]
     Dosage: 10 MILLIGRAM DAILY;
     Route: 048
  9. CRESTOR 10 MG [Concomitant]
     Dosage: 10 MILLIGRAM DAILY;
     Route: 048
  10. BEN-U-RON [Concomitant]
     Route: 048

REACTIONS (7)
  - Malaise [Recovered/Resolved]
  - Abdominal pain upper [Recovered/Resolved]
  - Epistaxis [Recovered/Resolved]
  - Nausea [Recovered/Resolved]
  - Abdominal discomfort [Recovered/Resolved]
  - Chest discomfort [Recovered/Resolved]
  - Hypertension [Recovered/Resolved]
